FAERS Safety Report 9412577 (Version 2)
Quarter: 2013Q3

REPORT INFORMATION
  Report Type: Report from Study
  Country: US (occurrence: US)
  Receive Date: 20130722
  Receipt Date: 20130828
  Transmission Date: 20140515
  Serious: Yes (Other)
  Sender: FDA-Public Use
  Company Number: US-ABBOTT-13P-163-1119629-00

PATIENT
  Age: 78 Year
  Sex: Female
  Weight: 91.71 kg

DRUGS (2)
  1. HUMIRA [Suspect]
     Indication: CROHN^S DISEASE
     Dates: start: 201004, end: 201305
  2. PEPCID [Concomitant]
     Indication: GASTROOESOPHAGEAL REFLUX DISEASE
     Dosage: 20 MG DAILY

REACTIONS (4)
  - Proctalgia [Unknown]
  - Constipation [Recovering/Resolving]
  - Abdominal pain [Recovering/Resolving]
  - Dysuria [Not Recovered/Not Resolved]
